FAERS Safety Report 20134047 (Version 2)
Quarter: 2022Q1

REPORT INFORMATION
  Report Type: Report from Study
  Country: US (occurrence: US)
  Receive Date: 20211201
  Receipt Date: 20220225
  Transmission Date: 20220423
  Serious: Yes (Hospitalization, Other)
  Sender: FDA-Public Use
  Company Number: US-ABBVIE-21K-163-4179713-00

PATIENT
  Age: 67 Year
  Sex: Female
  Weight: 54.480 kg

DRUGS (18)
  1. HUMIRA [Suspect]
     Active Substance: ADALIMUMAB
     Indication: Ankylosing spondylitis
     Route: 058
     Dates: start: 20211015, end: 20211112
  2. MODERNA COVID-19 VACCINE [Concomitant]
     Active Substance: ELASOMERAN
     Indication: COVID-19 immunisation
     Dosage: 1ST DOSE
     Route: 030
     Dates: start: 20210205, end: 20210205
  3. MODERNA COVID-19 VACCINE [Concomitant]
     Active Substance: ELASOMERAN
     Dosage: 2ND DOSE
     Route: 030
     Dates: start: 20210305, end: 20210305
  4. MODERNA COVID-19 VACCINE [Concomitant]
     Active Substance: ELASOMERAN
     Dosage: 1ST BOOSTER DOSE
     Route: 030
     Dates: start: 20210831, end: 20210831
  5. MODERNA COVID-19 VACCINE [Concomitant]
     Active Substance: ELASOMERAN
     Dosage: 2ND BOOSTER DOSE
     Route: 030
     Dates: start: 20220201, end: 20220201
  6. LINACLOTIDE [Concomitant]
     Active Substance: LINACLOTIDE
     Indication: Constipation
  7. FLUCONAZOLE [Concomitant]
     Active Substance: FLUCONAZOLE
     Indication: Infection
  8. TYMLOS [Concomitant]
     Active Substance: ABALOPARATIDE
     Indication: Bone development abnormal
  9. XALATAN [Concomitant]
     Active Substance: LATANOPROST
     Indication: Glaucoma
  10. RIFADIN [Concomitant]
     Active Substance: RIFAMPIN
     Indication: Infection
  11. NAPROXEN [Concomitant]
     Active Substance: NAPROXEN
     Indication: Ankylosing spondylitis
  12. LYRICA [Concomitant]
     Active Substance: PREGABALIN
     Indication: Neuralgia
  13. SENOKOT [Concomitant]
     Active Substance: SENNOSIDES
     Indication: Constipation
  14. MIRALAX [Concomitant]
     Active Substance: POLYETHYLENE GLYCOL 3350
     Indication: Constipation
  15. CYMBALTA [Concomitant]
     Active Substance: DULOXETINE HYDROCHLORIDE
     Indication: Pain
  16. RHOPRESSA [Concomitant]
     Active Substance: NETARSUDIL MESYLATE
     Indication: Glaucoma
  17. SYNTHROID [Concomitant]
     Active Substance: LEVOTHYROXINE SODIUM
     Indication: Thyroid disorder
  18. OMEPRAZOLE [Concomitant]
     Active Substance: OMEPRAZOLE
     Indication: Epigastric discomfort

REACTIONS (16)
  - Thoracic vertebral fracture [Recovering/Resolving]
  - Gait inability [Recovered/Resolved]
  - Anaemia [Recovering/Resolving]
  - Staphylococcal infection [Recovering/Resolving]
  - Sepsis [Recovering/Resolving]
  - Back injury [Unknown]
  - Blood chloride decreased [Unknown]
  - Blood bicarbonate increased [Not Recovered/Not Resolved]
  - Cortisol increased [Unknown]
  - Blood potassium increased [Recovered/Resolved]
  - Arthralgia [Recovered/Resolved]
  - Arthritis infective [Recovering/Resolving]
  - Aspartate aminotransferase increased [Unknown]
  - Lymphocyte count increased [Unknown]
  - Eosinophil count increased [Unknown]
  - Basophil count increased [Unknown]

NARRATIVE: CASE EVENT DATE: 20211019
